FAERS Safety Report 9201999 (Version 1)
Quarter: 2013Q2

REPORT INFORMATION
  Report Type: Spontaneous
  Country: IT (occurrence: FR)
  Receive Date: 20130401
  Receipt Date: 20130401
  Transmission Date: 20140414
  Serious: Yes (Hospitalization)
  Sender: FDA-Public Use
  Company Number: FR-FRI-1000043894

PATIENT
  Age: 46 Year
  Sex: Male

DRUGS (5)
  1. NEBIVOLOL [Suspect]
     Route: 048
  2. URAPIDIL [Suspect]
     Route: 048
  3. MIMPARA [Suspect]
     Route: 048
  4. CACIT VITAMINE D3 [Suspect]
     Route: 048
     Dates: end: 20120620
  5. CORTICOSTEROIDS (NOS) [Concomitant]

REACTIONS (2)
  - Confusional state [Recovered/Resolved]
  - Intestinal obstruction [Recovered/Resolved with Sequelae]
